FAERS Safety Report 22391282 (Version 2)
Quarter: 2023Q2

REPORT INFORMATION
  Report Type: Spontaneous
  Country: US (occurrence: US)
  Receive Date: 20230601
  Receipt Date: 20230626
  Transmission Date: 20230722
  Serious: Yes (Disabling, Other)
  Sender: FDA-Public Use
  Company Number: US-NOVOPROD-1068833

PATIENT
  Sex: Male

DRUGS (1)
  1. LEVEMIR [Suspect]
     Active Substance: INSULIN DETEMIR
     Indication: Type 2 diabetes mellitus
     Dosage: 65 IU, QD (AT NIGHT)
     Route: 058
     Dates: start: 200611

REACTIONS (7)
  - Disability [Unknown]
  - Localised infection [Unknown]
  - Skin graft [Unknown]
  - Staphylococcal infection [Unknown]
  - Haematoma [Unknown]
  - Illness [Unknown]
  - Wrong technique in product usage process [Unknown]
